FAERS Safety Report 16243534 (Version 1)
Quarter: 2019Q2

REPORT INFORMATION
  Report Type: Report from Study
  Country: IT (occurrence: IT)
  Receive Date: 20190426
  Receipt Date: 20190426
  Transmission Date: 20190711
  Serious: Yes (Other)
  Sender: FDA-Public Use
  Company Number: IT-GLAXOSMITHKLINE-IT2019073720

PATIENT
  Age: 29 Day
  Sex: Female

DRUGS (3)
  1. ACYCLOVIR. [Suspect]
     Active Substance: ACYCLOVIR
     Indication: HERPES VIRUS INFECTION
     Dosage: 330 MG, QD
     Route: 042
     Dates: start: 20190402, end: 20190404
  2. TEICOPLANIN [Concomitant]
     Active Substance: TEICOPLANIN
     Indication: BACTERIAL SEPSIS
     Dosage: UNK
     Route: 042
  3. AMIKACIN SULPHATE [Concomitant]
     Active Substance: AMIKACIN SULFATE
     Indication: BACTERIAL SEPSIS
     Dosage: UNK
     Route: 042

REACTIONS (2)
  - Administration site extravasation [Recovering/Resolving]
  - Rash vesicular [Recovering/Resolving]

NARRATIVE: CASE EVENT DATE: 20190404
